FAERS Safety Report 8100178 (Version 5)
Quarter: 2013Q4

REPORT INFORMATION
  Report Type: Spontaneous
  Country: US (occurrence: US)
  Receive Date: 20110822
  Receipt Date: 20131112
  Transmission Date: 20140711
  Serious: Yes (Hospitalization)
  Sender: FDA-Public Use
  Company Number: US-GLAXOSMITHKLINE-A0915708A

PATIENT
  Age: 66 Year
  Sex: Male
  Weight: 89.5 kg

DRUGS (1)
  1. AVANDIA [Suspect]
     Indication: DIABETES MELLITUS
     Route: 048
     Dates: start: 200403, end: 200708

REACTIONS (5)
  - Angina unstable [Unknown]
  - Tachycardia [Unknown]
  - Coronary artery disease [Unknown]
  - Chronic obstructive pulmonary disease [Unknown]
  - Angina pectoris [Unknown]
